FAERS Safety Report 9251742 (Version 1)
Quarter: 2013Q1

REPORT INFORMATION
  Report Type: Spontaneous
  Country: US (occurrence: None)
  Receive Date: 20130305
  Receipt Date: 20130305
  Transmission Date: 20140127
  Serious: Yes (Other)
  Sender: FDA-Public Use
  Company Number: 163-21880-12090145

PATIENT
  Age: 80 Year
  Sex: Female

DRUGS (2)
  1. REVLIMID (LENALIDOMIDE) (25 MILLIGRAM, CAPSULES) [Suspect]
     Indication: PLASMA CELL MYELOMA
     Dosage: 04/21/2011 - DISCONTINUED, CAPSULE, 25 MG, 21 IN 21 D, PO
  2. SYNVISC (HYALURONATE SODIUM) [Concomitant]

REACTIONS (2)
  - Diarrhoea [None]
  - Drug ineffective [None]
